FAERS Safety Report 12434522 (Version 1)
Quarter: 2016Q2

REPORT INFORMATION
  Report Type: Report from Study
  Country: VE (occurrence: VE)
  Receive Date: 20160603
  Receipt Date: 20160603
  Transmission Date: 20160815
  Serious: Yes (Death, Hospitalization)
  Sender: FDA-Public Use
  Company Number: VE-ABBVIE-16P-178-1641254-00

PATIENT
  Age: 74 Year
  Sex: Male

DRUGS (1)
  1. ZEMPLAR [Suspect]
     Active Substance: PARICALCITOL
     Indication: PRODUCT USED FOR UNKNOWN INDICATION
     Route: 042
     Dates: start: 20140722

REACTIONS (4)
  - Death [Fatal]
  - Diabetic foot [Unknown]
  - Sepsis [Unknown]
  - Hypotension [Unknown]

NARRATIVE: CASE EVENT DATE: 20160527
